FAERS Safety Report 9835123 (Version 1)
Quarter: 2014Q1

REPORT INFORMATION
  Report Type: Spontaneous
  Country: US (occurrence: US)
  Receive Date: 20140122
  Receipt Date: 20140122
  Transmission Date: 20141002
  Serious: No
  Sender: FDA-Public Use
  Company Number: US-BRISTOL-MYERS SQUIBB COMPANY-19801455

PATIENT
  Age: 72 Year
  Sex: Female
  Weight: 54.42 kg

DRUGS (11)
  1. ELIQUIS [Suspect]
     Indication: ATRIAL FIBRILLATION
     Dosage: ELIQUIS 5MG TABS
     Dates: start: 20131107
  2. METAMUCIL [Concomitant]
     Indication: CONSTIPATION
     Dosage: 1 DF: 1 HEAPING TEASPOON IN THE MORNING
  3. TYLENOL [Concomitant]
     Indication: PAIN
     Dosage: 1 DF: TWO EVERY MORNING AND TWO EVERY NIGHT
  4. TYLENOL [Concomitant]
     Indication: OSTEOARTHRITIS
     Dosage: 1 DF: TWO EVERY MORNING AND TWO EVERY NIGHT
  5. DIOVAN [Concomitant]
     Indication: BLOOD PRESSURE
     Dosage: DAILY
  6. MULTIVITAMIN [Concomitant]
  7. CITRACAL [Concomitant]
     Dosage: 1 DF: TWO AT LUNCH AND TWO AT BEDTIME
  8. XANAX [Concomitant]
     Dosage: Q.H.S
  9. XANAX [Concomitant]
  10. NASONEX [Concomitant]
     Route: 045
  11. MAGNESIUM [Concomitant]
     Dosage: 1 DF =TWO AT LUNCH AND TWO AT BEDTIME

REACTIONS (3)
  - Anxiety [Unknown]
  - Constipation [Unknown]
  - Drug administration error [Unknown]
